FAERS Safety Report 7771349-X (Version None)
Quarter: 2011Q3

REPORT INFORMATION
  Report Type: 
  Country: None (occurrence: None)
  Receive Date: 20110922
  Receipt Date: 20110916
  Transmission Date: 20111222
  Serious: Yes (Other)
  Sender: FDA-Public Use
  Company Number: US-VERTEX PHARMACEUTICALS INC.-AE-2011-001602

PATIENT
  Sex: Female
  Weight: 63.56 kg

DRUGS (16)
  1. NORMODYNE [Concomitant]
     Indication: HYPERTENSION
     Route: 048
  2. MILK THISTLE [Concomitant]
     Indication: PHYTOTHERAPY
     Route: 048
  3. BENADRYL [Concomitant]
     Indication: PRURITUS
     Route: 048
  4. LISINOPRIL [Concomitant]
     Indication: HYPERTENSION
     Route: 048
  5. VITAMIN D [Concomitant]
     Indication: VITAMIN SUPPLEMENTATION
     Route: 048
  6. INCIVEK [Suspect]
     Indication: HEPATITIS C
     Route: 048
     Dates: start: 20110901, end: 20110913
  7. MULTIVITAMINS W/O IRON [Concomitant]
     Indication: VITAMIN SUPPLEMENTATION
     Route: 048
  8. CALCIUM CARBONATE [Concomitant]
     Indication: MINERAL SUPPLEMENTATION
     Route: 048
  9. ASPIRIN [Concomitant]
     Route: 048
  10. TRAZODONE HYDROCHLORIDE [Concomitant]
     Indication: INSOMNIA
     Route: 048
  11. RIBAVIRIN [Concomitant]
     Indication: HEPATITIS C
     Route: 048
     Dates: start: 20110901
  12. POTASSIUM CITRATE [Concomitant]
     Route: 048
  13. PRAVASTATIN SODIUM [Concomitant]
     Route: 048
  14. PEGASYS [Concomitant]
     Indication: HEPATITIS C
     Route: 058
     Dates: start: 20110901
  15. CLONIDINE [Concomitant]
     Indication: HYPERTENSION
  16. ADVANCED B12 [Concomitant]
     Indication: VITAMIN SUPPLEMENTATION
     Route: 048

REACTIONS (9)
  - CHEST DISCOMFORT [None]
  - CAPILLARY FRAGILITY [None]
  - DYSPNOEA [None]
  - BLOOD PRESSURE INCREASED [None]
  - RASH [None]
  - PHARYNGEAL OEDEMA [None]
  - MOUTH ULCERATION [None]
  - DYSPHAGIA [None]
  - VOMITING [None]
